FAERS Safety Report 12918340 (Version 1)
Quarter: 2016Q4

REPORT INFORMATION
  Report Type: Spontaneous
  Country: HR (occurrence: HR)
  Receive Date: 20161107
  Receipt Date: 20161107
  Transmission Date: 20170207
  Serious: Yes (Hospitalization, Other)
  Sender: FDA-Public Use
  Company Number: HR-TEVA-707701ACC

PATIENT
  Sex: Female

DRUGS (2)
  1. PRAXITEN [Suspect]
     Active Substance: OXAZEPAM
     Route: 048
     Dates: start: 20160319
  2. TEGRETOL CR [Suspect]
     Active Substance: CARBAMAZEPINE
     Route: 048
     Dates: start: 20160319

REACTIONS (4)
  - Somnolence [Unknown]
  - Sopor [Unknown]
  - Suicide attempt [Unknown]
  - Intentional overdose [Unknown]

NARRATIVE: CASE EVENT DATE: 20160319
